FAERS Safety Report 4520461-7 (Version None)
Quarter: 2004Q4

REPORT INFORMATION
  Report Type: 
  Country: None (occurrence: None)
  Receive Date: 20041203
  Receipt Date: 20041123
  Transmission Date: 20050328
  Serious: Yes (Hospitalization, Other)
  Sender: FDA-Public Use
  Company Number: HQWYE683824NOV04

PATIENT
  Age: 14 Year
  Sex: Female
  Weight: 41.31 kg

DRUGS (4)
  1. RAPAMUNE [Suspect]
     Indication: PROPHYLAXIS AGAINST TRANSPLANT REJECTION
     Dosage: SEE IMAGE
     Route: 048
     Dates: start: 20040101, end: 20040101
  2. RAPAMUNE [Suspect]
     Indication: PROPHYLAXIS AGAINST TRANSPLANT REJECTION
     Dosage: SEE IMAGE
     Route: 048
     Dates: start: 20040301, end: 20040101
  3. RAPAMUNE [Suspect]
     Indication: PROPHYLAXIS AGAINST TRANSPLANT REJECTION
     Dosage: SEE IMAGE
     Route: 048
     Dates: start: 20040101, end: 20041112
  4. PROGRAF (TACROLIMUS) [Concomitant]

REACTIONS (8)
  - ASPERGILLOSIS [None]
  - EPSTEIN-BARR VIRUS INFECTION [None]
  - HEADACHE [None]
  - IMMUNOSUPPRESSANT DRUG LEVEL INCREASED [None]
  - LIVER TRANSPLANT REJECTION [None]
  - LYMPHOPROLIFERATIVE DISORDER [None]
  - ORAL MUCOSAL BLISTERING [None]
  - RASH [None]
